FAERS Safety Report 6558152-3 (Version None)
Quarter: 2010Q1

REPORT INFORMATION
  Report Type: 
  Country: None (occurrence: None)
  Receive Date: 20100129
  Receipt Date: 20100125
  Transmission Date: 20100710
  Serious: Yes (Hospitalization)
  Sender: FDA-Public Use
  Company Number: D0066214A

PATIENT
  Age: 58 Year
  Sex: Male

DRUGS (4)
  1. QUILONUM RETARD [Suspect]
     Route: 048
     Dates: start: 20070119, end: 20070810
  2. BUPROPION [Suspect]
     Dosage: 150MG PER DAY
     Route: 065
     Dates: start: 20070802
  3. REMERGIL [Suspect]
     Dosage: 45MG PER DAY
     Route: 065
  4. NORTRIPTYLINE HCL [Suspect]
     Route: 065
     Dates: start: 20070728

REACTIONS (3)
  - ACCOMMODATION DISORDER [None]
  - DRUG INTERACTION [None]
  - TREMOR [None]
